FAERS Safety Report 18076975 (Version 1)
Quarter: 2020Q3

REPORT INFORMATION
  Report Type: Spontaneous
  Country: CA (occurrence: CA)
  Receive Date: 20200727
  Receipt Date: 20200727
  Transmission Date: 20201103
  Serious: Yes (Congenital Anomaly)
  Sender: FDA-Public Use
  Company Number: CA-TEVA-2020-CA-1806101

PATIENT
  Age: 38 Year
  Sex: Female
  Weight: 114 kg

DRUGS (11)
  1. OXAZEPAM. [Suspect]
     Active Substance: OXAZEPAM
     Indication: DEPRESSION
     Dosage: 16 MILLIGRAM DAILY;
     Route: 048
  2. MATERNA [Suspect]
     Active Substance: MINERALS\VITAMINS
     Indication: PREGNANCY
     Dosage: 1 DOSAGE FORMS DAILY;
     Route: 048
  3. SALBUTAMOL [Suspect]
     Active Substance: ALBUTEROL
     Indication: ASTHMA
     Route: 055
  4. VITAMIN B12 [Suspect]
     Active Substance: CYANOCOBALAMIN
     Dosage: 1200 MICROGRAM DAILY;
     Route: 048
  5. ESCITALOPRAM [Suspect]
     Active Substance: ESCITALOPRAM OXALATE
     Indication: DEPRESSION
     Dosage: 20 MILLIGRAM DAILY;
     Route: 048
  6. VITAMIN D [Suspect]
     Active Substance: VITAMIN D NOS
     Route: 048
  7. CITALOPRAM [Suspect]
     Active Substance: CITALOPRAM HYDROBROMIDE
     Indication: DEPRESSION
     Dosage: 10 MILLIGRAM DAILY;
     Route: 048
  8. MONTELUKAST [Suspect]
     Active Substance: MONTELUKAST SODIUM
     Indication: ASTHMA
     Dosage: 10 MILLIGRAM DAILY;
     Route: 048
  9. DOXYLAMINE SUCCINATE/PYRIDOXINE HYDROCHLORIDE [Suspect]
     Active Substance: DOXYLAMINE SUCCINATE\PYRIDOXINE HYDROCHLORIDE
     Indication: MORNING SICKNESS
     Dosage: 200 MILLIGRAM DAILY;
     Route: 048
  10. ASPIRIN. [Suspect]
     Active Substance: ASPIRIN
     Indication: PREGNANCY
     Dosage: 60 MILLIGRAM DAILY;
     Route: 048
  11. VYVANSE [Suspect]
     Active Substance: LISDEXAMFETAMINE DIMESYLATE
     Indication: DEPRESSION
     Dosage: 20 MILLIGRAM DAILY;
     Route: 048

REACTIONS (1)
  - Fallot^s tetralogy [Unknown]
